FAERS Safety Report 4454345-X (Version None)
Quarter: 2004Q3

REPORT INFORMATION
  Report Type: 
  Country: None (occurrence: None)
  Receive Date: 20040826
  Receipt Date: 20040528
  Transmission Date: 20050211
  Serious: No
  Sender: FDA-Public Use
  Company Number: WAES 0406USA00205

PATIENT
  Sex: Female
  Weight: 89.8122 kg

DRUGS (4)
  1. ZETIA [Suspect]
     Indication: HYPERCHOLESTEROLAEMIA
     Dosage: 10 MG/ DAILY/ PO
     Route: 048
     Dates: start: 20030301, end: 20030601
  2. COZAAR [Concomitant]
  3. LIPITOR [Concomitant]
  4. PAXIL [Concomitant]

REACTIONS (1)
  - HEPATIC ENZYME INCREASED [None]
